FAERS Safety Report 10905714 (Version 1)
Quarter: 2015Q1

REPORT INFORMATION
  Report Type: Spontaneous
  Country: GB (occurrence: GB)
  Receive Date: 20150311
  Receipt Date: 20150311
  Transmission Date: 20150721
  Serious: Yes (Other)
  Sender: FDA-Public Use
  Company Number: ALCN2015GB001626

PATIENT
  Age: 87 Year
  Sex: Female
  Weight: 68 kg

DRUGS (11)
  1. BETACARDONE [Concomitant]
     Dosage: 0.5 DF, BID
     Route: 048
     Dates: start: 20140902
  2. OXYBUTYNIN [Concomitant]
     Active Substance: OXYBUTYNIN
     Dosage: 1 DF, BID
     Dates: start: 20140902
  3. METRONIDAZOLE. [Concomitant]
     Active Substance: METRONIDAZOLE
     Dosage: 1 DF, TID
     Dates: start: 20150211, end: 20150218
  4. SIMVASTATIN. [Concomitant]
     Active Substance: SIMVASTATIN
     Dosage: 1 DF, QD
     Dates: start: 20140902
  5. ALENDRONIC ACID [Concomitant]
     Active Substance: ALENDRONIC ACID
     Dosage: 1 DF, QW
     Route: 048
     Dates: start: 20140902
  6. SALBUTAMOL [Concomitant]
     Active Substance: ALBUTEROL
     Dosage: 1 DF, PRN
     Dates: start: 20140902
  7. CIPROFLOXACIN. [Suspect]
     Active Substance: CIPROFLOXACIN
     Dosage: UNK
     Dates: start: 20150211, end: 20150218
  8. ADCAL//CALCIUM CARBONATE [Concomitant]
     Dosage: 2 DF, QD
     Dates: start: 20140902
  9. LERCANIDIPINE HYDROCHLORIDE [Concomitant]
     Active Substance: LERCANIDIPINE HYDROCHLORIDE
     Dosage: 1 DF, QD
     Dates: start: 20140902
  10. PHENERGAN ^PATRIOT^ [Concomitant]
     Dosage: 1 DF, BID
     Route: 048
     Dates: start: 20150211, end: 20150218
  11. TIOTROPIUM [Concomitant]
     Active Substance: TIOTROPIUM
     Dosage: 1 DF, QD
     Route: 055

REACTIONS (1)
  - Tendonitis [Recovering/Resolving]

NARRATIVE: CASE EVENT DATE: 20150217
